FAERS Safety Report 8334748-3 (Version None)
Quarter: 2012Q2

REPORT INFORMATION
  Report Type: 
  Country: None (occurrence: None)
  Receive Date: 20120503
  Receipt Date: 20120425
  Transmission Date: 20120825
  Serious: Yes (Other)
  Sender: FDA-Public Use
  Company Number: DE-ALEXION PHARMACEUTICALS INC.-A201200834

PATIENT
  Sex: Female

DRUGS (3)
  1. SOLIRIS [Suspect]
     Indication: PAROXYSMAL NOCTURNAL HAEMOGLOBINURIA
     Dosage: 600 MG, QW
     Route: 042
     Dates: start: 20120418
  2. LEUCOVORIN CALCIUM [Concomitant]
     Dosage: 5 MG, QD
     Route: 048
     Dates: start: 20120101
  3. ENOXAPARIN [Concomitant]
     Dosage: 80 MG, QD
     Route: 058
     Dates: start: 20120101

REACTIONS (1)
  - HAEMOGLOBIN DECREASED [None]
